FAERS Safety Report 18749377 (Version 2)
Quarter: 2021Q1

REPORT INFORMATION
  Report Type: Spontaneous
  Country: AU (occurrence: AU)
  Receive Date: 20210116
  Receipt Date: 20210201
  Transmission Date: 20210419
  Serious: Yes (Hospitalization)
  Sender: FDA-Public Use
  Company Number: NVSC2021AU007333

PATIENT
  Age: 73 Year
  Sex: Male
  Weight: 63 kg

DRUGS (1)
  1. CILOXAN [Suspect]
     Active Substance: CIPROFLOXACIN HYDROCHLORIDE
     Indication: GLAUCOMA SURGERY
     Dosage: 4 DRP, QID
     Route: 047
     Dates: start: 20201126, end: 20201230

REACTIONS (2)
  - Arthralgia [Not Recovered/Not Resolved]
  - Limb discomfort [Unknown]

NARRATIVE: CASE EVENT DATE: 20201226
